FAERS Safety Report 21266463 (Version 1)
Quarter: 2022Q3

REPORT INFORMATION
  Report Type: Spontaneous
  Country: CN (occurrence: CN)
  Receive Date: 20220829
  Receipt Date: 20220829
  Transmission Date: 20221027
  Serious: Yes (Hospitalization, Other)
  Sender: FDA-Public Use
  Company Number: CN-PFIZER INC-PV202200050071

PATIENT
  Age: 50 Year
  Sex: Male
  Weight: 48 kg

DRUGS (4)
  1. MEDROL [Suspect]
     Active Substance: METHYLPREDNISOLONE
     Indication: Transplant rejection
     Dosage: 4 MG, 1X/DAY
     Route: 048
     Dates: start: 20220502, end: 20220823
  2. PROGRAF [Suspect]
     Active Substance: TACROLIMUS
     Indication: Transplant rejection
     Dosage: 3.5 MG, 2X/DAY
     Route: 048
     Dates: start: 20220502, end: 20220815
  3. MIZORIBINE [Suspect]
     Active Substance: MIZORIBINE
     Indication: Transplant rejection
     Dosage: 50 MG, 1X/DAY
     Route: 048
     Dates: start: 20220502, end: 20220815
  4. MIZORIBINE [Suspect]
     Active Substance: MIZORIBINE
     Dosage: 75 MG, 1X/DAY
     Route: 048
     Dates: start: 20220502, end: 20220815

REACTIONS (5)
  - White blood cell count decreased [Recovering/Resolving]
  - Abdominal distension [Recovering/Resolving]
  - Abdominal pain [Recovering/Resolving]
  - Neutrophil count decreased [Recovering/Resolving]
  - Cytopenia [Recovering/Resolving]

NARRATIVE: CASE EVENT DATE: 20220813
